FAERS Safety Report 5082540-8 (Version None)
Quarter: 2006Q3

REPORT INFORMATION
  Report Type: 
  Country: None (occurrence: None)
  Receive Date: 20060817
  Receipt Date: 20060712
  Transmission Date: 20061208
  Serious: Yes (Hospitalization)
  Sender: FDA-Public Use
  Company Number: US-ROCHE-455415

PATIENT
  Age: 46 Year
  Sex: Male

DRUGS (3)
  1. PEGASYS [Suspect]
     Dosage: STRENGTH REPORTED AS 180 MCG/0.5 ML.
     Route: 058
     Dates: start: 20060415
  2. COPEGUS [Suspect]
     Route: 048
     Dates: start: 20060415
  3. COPEGUS [Suspect]
     Route: 048

REACTIONS (10)
  - ANAEMIA [None]
  - ASTHENIA [None]
  - DEHYDRATION [None]
  - FATIGUE [None]
  - INSOMNIA [None]
  - MOOD SWINGS [None]
  - PRURITUS [None]
  - PYREXIA [None]
  - TREMOR [None]
  - VISION BLURRED [None]
